FAERS Safety Report 25207251 (Version 1)
Quarter: 2025Q2

REPORT INFORMATION
  Report Type: Spontaneous
  Country: GB (occurrence: GB)
  Receive Date: 20250417
  Receipt Date: 20250417
  Transmission Date: 20250716
  Serious: Yes (Other)
  Sender: RANBAXY
  Company Number: GB-MHRA-TPP34852009C14467648YC1743703633310

PATIENT
  Age: 12 Year
  Sex: Female
  Weight: 65 kg

DRUGS (3)
  1. SERTRALINE [Suspect]
     Active Substance: SERTRALINE HYDROCHLORIDE
     Indication: Ill-defined disorder
     Route: 065
     Dates: start: 20250403
  2. ATOMOXETINE [Concomitant]
     Active Substance: ATOMOXETINE
     Indication: Ill-defined disorder
     Route: 065
     Dates: start: 20250403
  3. PROMETHAZINE [Concomitant]
     Active Substance: PROMETHAZINE HYDROCHLORIDE
     Indication: Ill-defined disorder
     Route: 065
     Dates: start: 20250403

REACTIONS (2)
  - Agitation [Recovered/Resolved]
  - Anxiety [Unknown]
